FAERS Safety Report 10424299 (Version 2)
Quarter: 2014Q3

REPORT INFORMATION
  Report Type: Report from Study
  Country: BR (occurrence: BR)
  Receive Date: 20140902
  Receipt Date: 20140929
  Transmission Date: 20150326
  Serious: Yes (Death, Hospitalization, Other)
  Sender: FDA-Public Use
  Company Number: PHHY2014BR110394

PATIENT
  Sex: Male
  Weight: 82 kg

DRUGS (3)
  1. DIOVAN [Suspect]
     Active Substance: VALSARTAN
     Indication: HYPERTENSION
     Dosage: 1 DF, QD
     Route: 048
  2. LIPITOR [Concomitant]
     Active Substance: ATORVASTATIN CALCIUM
     Dosage: UNK UKN, UNK
  3. LOPID [Concomitant]
     Active Substance: GEMFIBROZIL
     Dosage: UNK UKN, UNK

REACTIONS (4)
  - Hypertension [Unknown]
  - Cardiac failure [Fatal]
  - Heart rate decreased [Unknown]
  - Drug ineffective [Unknown]
